FAERS Safety Report 9287696 (Version 2)
Quarter: 2014Q1

REPORT INFORMATION
  Report Type: Report from Study
  Country: CA (occurrence: CA)
  Receive Date: 20130514
  Receipt Date: 20140328
  Transmission Date: 20141002
  Serious: Yes (Life-Threatening, Hospitalization, Disabling)
  Sender: FDA-Public Use
  Company Number: CA-JNJFOC-20130506144

PATIENT
  Age: 69 Year
  Sex: Female
  Weight: 86.7 kg

DRUGS (12)
  1. REMICADE [Suspect]
     Indication: RHEUMATOID ARTHRITIS
     Route: 042
  2. REMICADE [Suspect]
     Indication: RHEUMATOID ARTHRITIS
     Route: 042
     Dates: start: 20110817
  3. REMICADE [Suspect]
     Indication: RHEUMATOID ARTHRITIS
     Route: 042
     Dates: start: 201304
  4. ADVIL [Suspect]
     Indication: PAIN
     Route: 065
  5. TYLENOL RHEUMATOID [Concomitant]
     Indication: PAIN
     Route: 065
  6. NITRO-DUR [Concomitant]
     Route: 065
  7. METHOTREXATE [Concomitant]
     Route: 065
  8. ASA [Concomitant]
     Route: 065
  9. APO-TIMOP [Concomitant]
     Route: 065
  10. LIPITOR [Concomitant]
     Route: 065
  11. FOLIC ACID [Concomitant]
     Route: 065
  12. MICARDIS [Concomitant]
     Route: 065

REACTIONS (3)
  - Cerebrovascular accident [Recovering/Resolving]
  - Blood pressure increased [Unknown]
  - Swelling [Unknown]
